FAERS Safety Report 6680140 (Version 4)
Quarter: 2013Q2

REPORT INFORMATION
  Report Type: Report from Study
  Country: TR (occurrence: TR)
  Receive Date: 20080625
  Receipt Date: 20130515
  Transmission Date: 20140414
  Serious: Yes (Death, Hospitalization, Disabling)
  Sender: FDA-Public Use
  Company Number: PHHO2008TR07607

PATIENT
  Age: 72 Year
  Sex: Female
  Weight: 55 kg

DRUGS (5)
  1. PLACEBO [Suspect]
     Indication: CARCINOID TUMOUR
     Dosage: PLACEBO
     Route: 048
     Dates: start: 20080530, end: 20080610
  2. SANDOSTATIN LAR [Suspect]
     Indication: CARCINOID TUMOUR
     Dosage: DOUBLE BLIND
     Route: 048
     Dates: start: 20080530, end: 20080610
  3. HYZAAR [Concomitant]
     Dosage: 50/125 MG
     Route: 048
     Dates: start: 1998
  4. LOMOTIL [Concomitant]
     Dosage: 2.5 MG BID
     Route: 048
     Dates: start: 20080521
  5. VOLTAREN [Concomitant]
     Dosage: 75 MG / DAY
     Route: 048
     Dates: start: 20080401

REACTIONS (9)
  - Sepsis [Fatal]
  - Renal failure acute [Recovered/Resolved]
  - Aphthous stomatitis [Recovering/Resolving]
  - Hypophagia [Recovering/Resolving]
  - Malnutrition [Unknown]
  - Hepatotoxicity [Recovering/Resolving]
  - Diarrhoea [Recovering/Resolving]
  - Hyperbilirubinaemia [Unknown]
  - Disease progression [Unknown]
